FAERS Safety Report 8934557 (Version 1)
Quarter: 2012Q4

REPORT INFORMATION
  Report Type: 
  Country: ES (occurrence: ES)
  Receive Date: 20121129
  Receipt Date: 20121129
  Transmission Date: 20130627
  Serious: Yes (Hospitalization, Other)
  Sender: FDA-Public Use
  Company Number: ES-ELI_LILLY_AND_COMPANY-ES201211005634

PATIENT
  Sex: Female

DRUGS (1)
  1. FORSTEO [Suspect]
     Indication: OSTEOPOROSIS
     Dosage: 20 ug, qd
     Dates: start: 201104

REACTIONS (6)
  - Laceration [Unknown]
  - Upper limb fracture [Unknown]
  - Fall [Unknown]
  - Accident [Unknown]
  - Pneumonia [Unknown]
  - Asthma [Unknown]
